FAERS Safety Report 11710831 (Version 1)
Quarter: 2015Q4

REPORT INFORMATION
  Report Type: Spontaneous
  Country: US (occurrence: US)
  Receive Date: 20151104
  Receipt Date: 20151104
  Transmission Date: 20160304
  Serious: No
  Sender: FDA-Public Use
  Company Number: US-ELI_LILLY_AND_COMPANY-US201104006873

PATIENT
  Age: 65 Year
  Sex: Female

DRUGS (4)
  1. FORTEO [Suspect]
     Active Substance: TERIPARATIDE
     Indication: OSTEOPOROSIS
     Dosage: UNK, QD
     Dates: start: 200908
  2. VITAMIN D [Concomitant]
     Active Substance: CHOLECALCIFEROL
  3. CALCIUM [Concomitant]
     Active Substance: CALCIUM
  4. CITRACAL [Concomitant]
     Active Substance: CALCIUM CITRATE

REACTIONS (8)
  - Blood alkaline phosphatase increased [Unknown]
  - Blood parathyroid hormone decreased [Unknown]
  - Paraesthesia [Unknown]
  - Blood calcium increased [Unknown]
  - Bone formation increased [Unknown]
  - Vitamin D decreased [Unknown]
  - Scar [Unknown]
  - Foot deformity [Unknown]

NARRATIVE: CASE EVENT DATE: 201010
